FAERS Safety Report 20501415 (Version 1)
Quarter: 2022Q1

REPORT INFORMATION
  Report Type: Report from Study
  Country: US (occurrence: US)
  Receive Date: 20220222
  Receipt Date: 20220222
  Transmission Date: 20220424
  Serious: Yes (Other)
  Sender: FDA-Public Use
  Company Number: US-BAYER-2022A014443

PATIENT
  Age: 60 Year
  Sex: Male

DRUGS (3)
  1. NEXAVAR [Suspect]
     Active Substance: SORAFENIB
     Indication: Hepatocellular carcinoma
     Dosage: UNK
  2. NEXAVAR [Suspect]
     Active Substance: SORAFENIB
     Indication: Connective tissue neoplasm
     Dosage: DAILY DOSE 400 MG
     Route: 048
     Dates: start: 20220113
  3. NEXAVAR [Suspect]
     Active Substance: SORAFENIB
     Indication: Soft tissue neoplasm
     Dosage: DAILY DOSE 400 MG
     Route: 048

REACTIONS (5)
  - Dizziness [Recovered/Resolved]
  - Hypertension [Recovered/Resolved]
  - Fatigue [Unknown]
  - Hypertension [Unknown]
  - Dry skin [Unknown]

NARRATIVE: CASE EVENT DATE: 20220211
